FAERS Safety Report 7438798-0 (Version None)
Quarter: 2011Q2

REPORT INFORMATION
  Report Type: 
  Country: None (occurrence: None)
  Receive Date: 20110426
  Receipt Date: 20110421
  Transmission Date: 20111010
  Serious: Yes (Death)
  Sender: FDA-Public Use
  Company Number: PHHY2011JP34061

PATIENT
  Age: 72 Year
  Sex: Male

DRUGS (3)
  1. SIMULECT [Suspect]
     Indication: RENAL TRANSPLANT
     Dosage: 20 MG, ONCE/SINGLE
     Route: 042
     Dates: start: 20110420
  2. TACROLIMUS [Concomitant]
     Indication: RENAL TRANSPLANT
     Dosage: UNK
  3. CELLCEPT [Concomitant]
     Indication: RENAL TRANSPLANT
     Dosage: UNK

REACTIONS (2)
  - HYPOTENSION [None]
  - SHOCK [None]
